FAERS Safety Report 10056625 (Version 1)
Quarter: 2014Q2

REPORT INFORMATION
  Report Type: Spontaneous
  Country: US (occurrence: US)
  Receive Date: 20140403
  Receipt Date: 20140403
  Transmission Date: 20141212
  Serious: Yes (Death)
  Sender: FDA-Public Use
  Company Number: US-ACTELION-A-US2014-96924

PATIENT
  Age: 62 Year
  Sex: Male

DRUGS (2)
  1. VENTAVIS [Suspect]
     Indication: PULMONARY ARTERIAL HYPERTENSION
     Dosage: 5 MCG, 3-9X/DAY
     Route: 055
     Dates: start: 20081112, end: 20140328
  2. REVATIO [Concomitant]

REACTIONS (1)
  - Death [Fatal]
